FAERS Safety Report 14505893 (Version 1)
Quarter: 2018Q1

REPORT INFORMATION
  Report Type: Spontaneous
  Country: US (occurrence: US)
  Receive Date: 20180208
  Receipt Date: 20180208
  Transmission Date: 20180509
  Serious: No
  Sender: FDA-Public Use
  Company Number: US-HQ SPECIALTY-US-2017INT000218

PATIENT

DRUGS (4)
  1. TAXOL [Suspect]
     Active Substance: PACLITAXEL
     Indication: METASTASES TO CENTRAL NERVOUS SYSTEM
     Dosage: UNK, WEEKLY, 3 WEEKS ON 1 WEEK OFF
     Dates: start: 201308, end: 201402
  2. CYCLOPHOSPHAMIDE W/DOXORUBICIN [Concomitant]
     Active Substance: CYCLOPHOSPHAMIDE\DOXORUBICIN
     Indication: METASTASES TO BONE
  3. TAXOL [Suspect]
     Active Substance: PACLITAXEL
     Indication: METASTASES TO BONE
  4. CYCLOPHOSPHAMIDE W/DOXORUBICIN [Concomitant]
     Active Substance: CYCLOPHOSPHAMIDE\DOXORUBICIN
     Indication: METASTASES TO CENTRAL NERVOUS SYSTEM

REACTIONS (1)
  - Neuropathy peripheral [Unknown]
